FAERS Safety Report 20461183 (Version 1)
Quarter: 2022Q1

REPORT INFORMATION
  Report Type: Spontaneous
  Country: US (occurrence: US)
  Receive Date: 20220211
  Receipt Date: 20220211
  Transmission Date: 20220423
  Serious: No
  Sender: FDA-Public Use
  Company Number: US-GLAXOSMITHKLINE-US2022AMR022511

PATIENT
  Age: 64 Year
  Sex: Female

DRUGS (2)
  1. FLOLAN [Suspect]
     Active Substance: EPOPROSTENOL SODIUM
     Indication: Pulmonary arterial hypertension
     Dosage: UNK,49 NG/KG/MIN, VIAL STRENGTH 1.5MG
     Dates: start: 20171006
  2. GLYCINE\MANNITOL\SODIUM CHLORIDE [Suspect]
     Active Substance: GLYCINE\MANNITOL\SODIUM CHLORIDE
     Indication: Vehicle solution use
     Dosage: UNK

REACTIONS (4)
  - Rash [Unknown]
  - Abdominal discomfort [Unknown]
  - Fatigue [Unknown]
  - Balance disorder [Unknown]

NARRATIVE: CASE EVENT DATE: 20220101
